FAERS Safety Report 17174804 (Version 2)
Quarter: 2019Q4

REPORT INFORMATION
  Report Type: Report from Study
  Country: IT (occurrence: IT)
  Receive Date: 20191219
  Receipt Date: 20191227
  Transmission Date: 20200122
  Serious: Yes (Hospitalization)
  Sender: FDA-Public Use
  Company Number: IT-PFIZER INC-2019540496

PATIENT
  Age: 29 Year
  Sex: Female
  Weight: 47.2 kg

DRUGS (8)
  1. PACLITAXEL. [Suspect]
     Active Substance: PACLITAXEL
     Indication: HER-2 POSITIVE BREAST CANCER
     Dosage: UNK
  2. PACLITAXEL. [Suspect]
     Active Substance: PACLITAXEL
     Dosage: 121.8 MBQ, LAST DOSE OF PACLITAXEL BEFORE THE SAE/ SERIOUS ADVERSE EVENT WAS ON 12SEP2019
     Route: 042
  3. TRASTUZUMAB. [Suspect]
     Active Substance: TRASTUZUMAB
     Indication: BREAST CANCER
     Dosage: UNK
  4. CARBOPLATIN. [Suspect]
     Active Substance: CARBOPLATIN
     Indication: HER-2 POSITIVE BREAST CANCER
     Dosage: 186 MG, LAST DOSE OF CARBOPLATIN BEFORE THE SAE/ SERIOUS ADVERSE EVENT WAS ON 12SEP2019
     Route: 042
     Dates: start: 20190506, end: 20190912
  5. TRASTUZUMAB. [Suspect]
     Active Substance: TRASTUZUMAB
     Indication: HER-2 POSITIVE BREAST CANCER
     Dosage: 306 MG, NO OF CYCLES RECEIVED 6 LAST DOSE OF TRASTUZUMAB BEFORE THE SAE WAS ON 12SEP2019
     Route: 041
     Dates: start: 20190506
  6. CARBOPLATIN. [Suspect]
     Active Substance: CARBOPLATIN
     Dosage: UNK
  7. PERTUZUMAB. [Suspect]
     Active Substance: PERTUZUMAB
     Indication: BREAST CANCER
     Dosage: UNK
  8. PERTUZUMAB. [Suspect]
     Active Substance: PERTUZUMAB
     Indication: HER-2 POSITIVE BREAST CANCER
     Dosage: 420 MG,RECEIVED TOTAL 6 CYCLES.LAST DOSE OF PERTUZUMAB BEFORE THE SAE WAS ON 12SEP2019
     Route: 042
     Dates: start: 20190506

REACTIONS (1)
  - Post procedural haemorrhage [Recovered/Resolved]

NARRATIVE: CASE EVENT DATE: 20191106
